FAERS Safety Report 4375941-4 (Version None)
Quarter: 2004Q2

REPORT INFORMATION
  Report Type: 
  Country: None (occurrence: None)
  Receive Date: 20040611
  Receipt Date: 20040426
  Transmission Date: 20050107
  Serious: Yes (Life-Threatening, Hospitalization, Other)
  Sender: FDA-Public Use
  Company Number: PHNU2004DE01687

PATIENT
  Age: 45 Year
  Sex: Female
  Weight: 70 kg

DRUGS (2)
  1. TRILEPTAL [Suspect]
     Indication: EPILEPSY
     Dosage: 2400MG/DAY
     Route: 048
     Dates: start: 20011101, end: 20040101
  2. TRILEPTAL [Suspect]
     Dosage: DOSAGE REDUSED
     Route: 048

REACTIONS (6)
  - BRADYCARDIA [None]
  - CARDIAC ARREST [None]
  - CEREBRAL ISCHAEMIA [None]
  - ELECTROENCEPHALOGRAM ABNORMAL [None]
  - FATIGUE [None]
  - HYPONATRAEMIA [None]
